FAERS Safety Report 8638610 (Version 3)
Quarter: 2012Q4

REPORT INFORMATION
  Report Type: 
  Country: US (occurrence: US)
  Receive Date: 20120627
  Receipt Date: 20120828
  Transmission Date: 20130627
  Serious: No
  Sender: FDA-Public Use
  Company Number: US-ASTRAZENECA-2012SE40665

PATIENT
  Age: 72 Year
  Sex: Female

DRUGS (2)
  1. NEXIUM [Suspect]
     Route: 048
  2. COREG [Concomitant]

REACTIONS (6)
  - Oesophageal pain [Unknown]
  - Cardiac disorder [Unknown]
  - Oesophageal disorder [Unknown]
  - Gastrointestinal disorder [Unknown]
  - Eructation [Unknown]
  - Drug dose omission [Unknown]
